FAERS Safety Report 7637995-9 (Version None)
Quarter: 2011Q3

REPORT INFORMATION
  Report Type: 
  Country: None (occurrence: None)
  Receive Date: 20110727
  Receipt Date: 20110713
  Transmission Date: 20111222
  Serious: Yes (Other)
  Sender: FDA-Public Use
  Company Number: US-ELI_LILLY_AND_COMPANY-US201107002987

PATIENT
  Sex: Female

DRUGS (6)
  1. FORTEO [Suspect]
     Indication: OSTEOPOROSIS
     Dosage: 20 UG, QD
     Route: 065
     Dates: start: 20110501
  2. CITALOPRAM HYDROBROMIDE [Concomitant]
     Dosage: 10 MG, QD
  3. QUINAPRIL HCL [Concomitant]
  4. XANAX [Concomitant]
  5. FORTEO [Suspect]
     Dosage: 20 UG, QD
  6. TRICOR [Concomitant]
     Dosage: UNK, QD

REACTIONS (11)
  - FACE INJURY [None]
  - CONTUSION [None]
  - ASTHENIA [None]
  - HEART RATE INCREASED [None]
  - PAIN [None]
  - DISCOMFORT [None]
  - LESION EXCISION [None]
  - FALL [None]
  - SPINAL CORD COMPRESSION [None]
  - EYELID PTOSIS [None]
  - BALANCE DISORDER [None]
